FAERS Safety Report 12001387 (Version 1)
Quarter: 2016Q1

REPORT INFORMATION
  Report Type: Spontaneous
  Country: FR (occurrence: FR)
  Receive Date: 20160204
  Receipt Date: 20160204
  Transmission Date: 20160526
  Serious: Yes (Hospitalization)
  Sender: FDA-Public Use
  Company Number: FR-SA-2016SA015428

PATIENT
  Age: 83 Year
  Sex: Male

DRUGS (7)
  1. PLAVIX [Suspect]
     Active Substance: CLOPIDOGREL BISULFATE
     Indication: ARTERIAL OCCLUSIVE DISEASE
     Route: 048
     Dates: end: 20151228
  2. CRESTOR [Concomitant]
     Active Substance: ROSUVASTATIN CALCIUM
  3. VALIUM [Concomitant]
     Active Substance: DIAZEPAM
  4. EBIXA [Concomitant]
     Active Substance: MEMANTINE HYDROCHLORIDE
  5. IMOVANE [Concomitant]
     Active Substance: ZOPICLONE
  6. DOLIPRANE [Concomitant]
     Active Substance: ACETAMINOPHEN
  7. TIORFAN [Concomitant]
     Active Substance: RACECADOTRIL

REACTIONS (4)
  - Confusional state [Recovered/Resolved]
  - Subdural haematoma [Recovering/Resolving]
  - Nervous system disorder [Recovered/Resolved]
  - Fall [Recovered/Resolved]

NARRATIVE: CASE EVENT DATE: 20151228
